FAERS Safety Report 9455154 (Version 1)
Quarter: 2013Q3

REPORT INFORMATION
  Report Type: Spontaneous
  Country: PT (occurrence: PT)
  Receive Date: 20130813
  Receipt Date: 20130813
  Transmission Date: 20140515
  Serious: Yes (Other)
  Sender: FDA-Public Use
  Company Number: PT-ASTRAZENECA-2013SE56278

PATIENT
  Sex: Female
  Weight: 53 kg

DRUGS (3)
  1. VIMOVO [Suspect]
     Indication: TONSILLITIS
     Dosage: 500 MG+20 MG, 1 DF TWICE A DAY
     Route: 048
     Dates: start: 20130702, end: 20130705
  2. MACROPEN [Concomitant]
     Indication: TONSILLITIS
     Route: 048
     Dates: start: 20130702, end: 20130705
  3. PARACETAMOL GENERIS [Concomitant]
     Indication: TONSILLITIS
     Route: 048
     Dates: start: 20130702, end: 20130705

REACTIONS (3)
  - Eye swelling [Recovering/Resolving]
  - Rash [Recovering/Resolving]
  - Off label use [Unknown]
